FAERS Safety Report 9035520 (Version 1)
Quarter: 2013Q1

REPORT INFORMATION
  Report Type: Report from Study
  Country: US (occurrence: US)
  Receive Date: 20130129
  Receipt Date: 20130129
  Transmission Date: 20140127
  Serious: No
  Sender: FDA-Public Use
  Company Number: US-ABBOTT-12P-163-0907889-00

PATIENT
  Age: 47 Year
  Sex: Female

DRUGS (13)
  1. HUMIRA 40 MG/0.8 ML PEN [Suspect]
     Indication: RHEUMATOID ARTHRITIS
     Dates: start: 20120123
  2. METHOTREXATE [Concomitant]
     Indication: PRODUCT USED FOR UNKNOWN INDICATION
     Dosage: EVERY WEEK
     Route: 050
  3. PREDNISONE [Concomitant]
     Indication: PRODUCT USED FOR UNKNOWN INDICATION
     Dosage: 10 MG DAILY
  4. TRAMADOL [Concomitant]
     Indication: PAIN
     Dosage: EVERY FOUR TO FIVE HOURS AS NEEDED
  5. LORTAB [Concomitant]
     Indication: PAIN
     Dosage: 7.5/500 MG THREE TIMES DAILY
  6. MELOXICAM [Concomitant]
     Indication: PRODUCT USED FOR UNKNOWN INDICATION
     Dosage: 15 MG DAILY
  7. NORVASC [Concomitant]
     Indication: BLOOD PRESSURE
     Dosage: 10 MG DAILY
  8. HCTZ [Concomitant]
     Indication: FLUID RETENTION
     Dosage: 25 MG DAILY
  9. K-TAB [Concomitant]
     Indication: PRODUCT USED FOR UNKNOWN INDICATION
  10. SERTRALINE [Concomitant]
     Indication: ANXIETY
     Dosage: 50 MG DAILY
  11. SERTRALINE [Concomitant]
     Indication: DEPRESSION
  12. METHYLDOPA [Concomitant]
     Indication: BLOOD PRESSURE
     Dosage: OCCASIONALLY
     Dates: start: 2006
  13. METHYLDOPA [Concomitant]
     Indication: INSOMNIA

REACTIONS (4)
  - Pain in extremity [Not Recovered/Not Resolved]
  - Drug ineffective [Not Recovered/Not Resolved]
  - Injection site pain [Recovered/Resolved]
  - Injection site pain [Recovered/Resolved]
